FAERS Safety Report 6432652-9 (Version None)
Quarter: 2009Q4

REPORT INFORMATION
  Report Type: 
  Country: None (occurrence: None)
  Receive Date: 20091109
  Receipt Date: 20091102
  Transmission Date: 20100525
  Serious: Yes (Death, Hospitalization, Other)
  Sender: FDA-Public Use
  Company Number: US-CELGENEUS-163-21880-09092276

PATIENT
  Sex: Male
  Weight: 74 kg

DRUGS (4)
  1. REVLIMID [Suspect]
     Route: 048
     Dates: start: 20090917, end: 20091012
  2. PERCOCET [Concomitant]
     Indication: PAIN
     Route: 065
  3. PREDNISONE [Concomitant]
     Route: 065
     Dates: start: 20091003
  4. OXYGEN [Concomitant]
     Dosage: 3 LITERS CONTINUOUS
     Route: 045
     Dates: start: 20090901

REACTIONS (3)
  - DEATH [None]
  - LIVER FUNCTION TEST ABNORMAL [None]
  - ORGANISING PNEUMONIA [None]
